FAERS Safety Report 19216902 (Version 1)
Quarter: 2021Q2

REPORT INFORMATION
  Report Type: Spontaneous
  Country: US (occurrence: US)
  Receive Date: 20210505
  Receipt Date: 20210505
  Transmission Date: 20210717
  Serious: Yes (Hospitalization, Disabling)
  Sender: FDA-Public Use
  Company Number: None

PATIENT
  Age: 60 Year
  Sex: Female
  Weight: 121.05 kg

DRUGS (17)
  1. MAGNESIUM [Concomitant]
     Active Substance: MAGNESIUM
  2. PREGABALIN 50MG [Concomitant]
     Active Substance: PREGABALIN
  3. CELEBREX [Concomitant]
     Active Substance: CELECOXIB
  4. TRIAMTERENE?HCTZ 37.5?25MG [Concomitant]
  5. DOCUSATE SODIUM 100MG [Concomitant]
     Active Substance: DOCUSATE SODIUM
  6. METFORMIN [Concomitant]
     Active Substance: METFORMIN HYDROCHLORIDE
  7. DAILY FIBER [Concomitant]
     Active Substance: PSYLLIUM HUSK
  8. METOPROLOL ER 100MG [Concomitant]
  9. FLUTICASONE. [Concomitant]
     Active Substance: FLUTICASONE
  10. ZYRTEC [Concomitant]
     Active Substance: CETIRIZINE HYDROCHLORIDE
  11. BACLOFEN 10MG [Concomitant]
     Active Substance: BACLOFEN
  12. VITAMIN D3 125 MCG [Concomitant]
  13. ZEGERID OTC [Concomitant]
     Active Substance: OMEPRAZOLE\SODIUM BICARBONATE
  14. MELATONIN 3MG [Concomitant]
  15. OCREVUS [Suspect]
     Active Substance: OCRELIZUMAB
     Indication: MULTIPLE SCLEROSIS
     Dates: start: 20200420
  16. BUSPIRONE [Concomitant]
     Active Substance: BUSPIRONE HYDROCHLORIDE
  17. B?12  2500MCG [Concomitant]

REACTIONS (11)
  - Gait disturbance [None]
  - Disability [None]
  - Sciatica [None]
  - Asthenia [None]
  - Burning sensation [None]
  - Fatigue [None]
  - Tonic convulsion [None]
  - Peroneal nerve palsy [None]
  - Muscle spasms [None]
  - Mobility decreased [None]
  - Cognitive disorder [None]

NARRATIVE: CASE EVENT DATE: 20200824
